FAERS Safety Report 14707783 (Version 1)
Quarter: 2018Q2

REPORT INFORMATION
  Report Type: Spontaneous
  Country: SI (occurrence: SI)
  Receive Date: 20180403
  Receipt Date: 20180403
  Transmission Date: 20180711
  Serious: Yes (Other)
  Sender: FDA-Public Use
  Company Number: SI-UNICHEM PHARMACEUTICALS (USA) INC-UCM201803-000079

PATIENT
  Age: 38 Year
  Sex: Male

DRUGS (2)
  1. METHADONE [Concomitant]
     Active Substance: METHADONE HYDROCHLORIDE
  2. CLONIDINE HCL [Suspect]
     Active Substance: CLONIDINE HYDROCHLORIDE
     Indication: DRUG WITHDRAWAL SYNDROME NEONATAL

REACTIONS (3)
  - Metabolic acidosis [Recovered/Resolved]
  - Product use in unapproved indication [Unknown]
  - Hyperkalaemia [Recovered/Resolved]
